FAERS Safety Report 25593716 (Version 1)
Quarter: 2025Q3

REPORT INFORMATION
  Report Type: Spontaneous
  Country: US (occurrence: US)
  Receive Date: 20250722
  Receipt Date: 20250722
  Transmission Date: 20251021
  Serious: Yes (Other)
  Sender: ABBVIE
  Company Number: US-ABBVIE-6380357

PATIENT
  Age: 38 Year
  Sex: Female

DRUGS (1)
  1. LILETTA [Suspect]
     Active Substance: LEVONORGESTREL
     Indication: Product used for unknown indication
     Route: 015
     Dates: start: 20250530

REACTIONS (4)
  - Pelvic haemorrhage [Unknown]
  - Pelvic pain [Unknown]
  - Vulvovaginal discomfort [Unknown]
  - Device expulsion [Unknown]

NARRATIVE: CASE EVENT DATE: 20250618
